FAERS Safety Report 9454651 (Version 1)
Quarter: 2013Q3

REPORT INFORMATION
  Report Type: Spontaneous
  Country: US (occurrence: US)
  Receive Date: 20130812
  Receipt Date: 20130812
  Transmission Date: 20140515
  Serious: No
  Sender: FDA-Public Use
  Company Number: US-009507513-1308USA004999

PATIENT
  Sex: Female

DRUGS (2)
  1. CORICIDIN HBP COUGH AND COLD [Suspect]
     Indication: HYPERSENSITIVITY
     Dosage: 1 DF, ONCE
     Route: 048
  2. CORICIDIN HBP COUGH AND COLD [Suspect]
     Indication: MEDICAL OBSERVATION

REACTIONS (2)
  - Drug ineffective for unapproved indication [Unknown]
  - Off label use [Unknown]
